FAERS Safety Report 10197755 (Version 1)
Quarter: 2014Q2

REPORT INFORMATION
  Report Type: Spontaneous
  Country: US (occurrence: US)
  Receive Date: 20140527
  Receipt Date: 20140527
  Transmission Date: 20141212
  Serious: Yes (Other)
  Sender: FDA-Public Use
  Company Number: US-BRISTOL-MYERS SQUIBB COMPANY-20810891

PATIENT
  Sex: Male

DRUGS (3)
  1. BYETTA [Suspect]
     Dates: start: 20070403
  2. JANUVIA [Suspect]
     Dosage: LAST DOSE:3JUN09
     Dates: start: 20090311
  3. VICTOZA [Suspect]
     Dosage: 09FEB13
     Dates: start: 20130313

REACTIONS (1)
  - Pancreatic carcinoma [Unknown]
